FAERS Safety Report 6714580-4 (Version None)
Quarter: 2010Q2

REPORT INFORMATION
  Report Type: 
  Country: None (occurrence: None)
  Receive Date: 20100507
  Receipt Date: 20100505
  Transmission Date: 20101027
  Serious: Yes (Hospitalization)
  Sender: FDA-Public Use
  Company Number: US-BIOGENIDEC-2010BI012129

PATIENT
  Sex: Female
  Weight: 49 kg

DRUGS (7)
  1. TYSABRI [Suspect]
     Indication: MULTIPLE SCLEROSIS
     Route: 042
     Dates: start: 20081110, end: 20100201
  2. TYSABRI [Suspect]
     Route: 042
     Dates: start: 20081110, end: 20100201
  3. MS CONTIN [Concomitant]
     Indication: NEURALGIA
  4. PERCOCET [Concomitant]
     Indication: NEURALGIA
  5. VIMPAT [Concomitant]
  6. MARINOL [Concomitant]
     Indication: WEIGHT DECREASED
  7. FLORINEF [Concomitant]

REACTIONS (11)
  - ACUTE RESPIRATORY FAILURE [None]
  - CACHEXIA [None]
  - DECUBITUS ULCER [None]
  - HAEMORRHAGIC ANAEMIA [None]
  - LOSS OF CONSCIOUSNESS [None]
  - MULTIPLE SCLEROSIS [None]
  - NEPHROLITHIASIS [None]
  - PNEUMONIA STAPHYLOCOCCAL [None]
  - SEPSIS [None]
  - URINARY TRACT INFECTION [None]
  - UROSEPSIS [None]
